FAERS Safety Report 9685927 (Version 3)
Quarter: 2013Q4

REPORT INFORMATION
  Report Type: Spontaneous
  Country: US (occurrence: US)
  Receive Date: 20131113
  Receipt Date: 20131121
  Transmission Date: 20140711
  Serious: No
  Sender: FDA-Public Use
  Company Number: US-BAYER-2013-134983

PATIENT
  Age: 85 Year
  Sex: Female
  Weight: 71 kg

DRUGS (12)
  1. ALEVE CAPLET [Suspect]
     Indication: ARTHRITIS
     Dosage: 1 DF, UNK
     Dates: start: 20131030, end: 20131031
  2. COQ10 [Concomitant]
     Dosage: UNK
  3. ATENOLOL [Concomitant]
  4. BENICAR [Concomitant]
  5. PRAVASTATIN [Concomitant]
  6. METAMUCIL [Concomitant]
  7. ZETIA [Concomitant]
  8. ZYRTEC [Concomitant]
  9. FISH OIL [Concomitant]
  10. VITAMIN D NOS [Concomitant]
  11. MAGNESIUM [Concomitant]
  12. CALCIUM [Concomitant]

REACTIONS (5)
  - Abdominal pain upper [Not Recovered/Not Resolved]
  - Headache [Not Recovered/Not Resolved]
  - Flatulence [Not Recovered/Not Resolved]
  - Diarrhoea [Not Recovered/Not Resolved]
  - Therapeutic response unexpected [None]
